FAERS Safety Report 7036463-5 (Version None)
Quarter: 2010Q4

REPORT INFORMATION
  Report Type: 
  Country: None (occurrence: None)
  Receive Date: 20101011
  Receipt Date: 20100930
  Transmission Date: 20110411
  Serious: Yes (Hospitalization)
  Sender: FDA-Public Use
  Company Number: US-BIOGENIDEC-2010BI009233

PATIENT
  Age: 66 Year
  Sex: Female

DRUGS (3)
  1. AVONEX [Suspect]
     Indication: MULTIPLE SCLEROSIS
     Route: 030
     Dates: start: 20040521, end: 20100218
  2. AVONEX [Suspect]
     Route: 030
     Dates: start: 20100501, end: 20100101
  3. MEDICATION (NOS) [Concomitant]
     Indication: HYPERTENSION
     Dates: end: 20100101

REACTIONS (7)
  - BLINDNESS [None]
  - HYPERSENSITIVITY [None]
  - HYPERTENSION [None]
  - PNEUMONIA [None]
  - RASH [None]
  - THYROID DISORDER [None]
  - URTICARIA [None]
